FAERS Safety Report 4430150-5 (Version None)
Quarter: 2004Q3

REPORT INFORMATION
  Report Type: 
  Country: None (occurrence: None)
  Receive Date: 20040819
  Receipt Date: 20040819
  Transmission Date: 20050211
  Serious: Yes (Hospitalization)
  Sender: FDA-Public Use
  Company Number: None

PATIENT
  Sex: Male
  Weight: 70.3075 kg

DRUGS (1)
  1. ALTACE [Suspect]
     Indication: HYPERTENSION
     Dosage: ONE EVENING ORAL
     Route: 048
     Dates: start: 20040805, end: 20040815

REACTIONS (2)
  - PHARMACEUTICAL PRODUCT COMPLAINT [None]
  - SUPRAVENTRICULAR EXTRASYSTOLES [None]
